FAERS Safety Report 4653371-5 (Version None)
Quarter: 2005Q2

REPORT INFORMATION
  Report Type: 
  Country: None (occurrence: None)
  Receive Date: 20050504
  Receipt Date: 20050504
  Transmission Date: 20051028
  Serious: Yes (Other)
  Sender: FDA-Public Use
  Company Number: None

PATIENT
  Sex: Female
  Weight: 50.1225 kg

DRUGS (1)
  1. FUROSEMIDE  40 MG 2 BID [Suspect]
     Indication: CARDIAC FAILURE CONGESTIVE
     Dosage: 40 MG TWO BID  BY MOUTH
     Route: 048

REACTIONS (2)
  - PHARMACEUTICAL PRODUCT COMPLAINT [None]
  - URTICARIA [None]
